FAERS Safety Report 23102976 (Version 1)
Quarter: 2023Q4

REPORT INFORMATION
  Report Type: Other
  Country: IT (occurrence: None)
  Receive Date: 20231025
  Receipt Date: 20231025
  Transmission Date: 20240109
  Serious: Yes (Death, Hospitalization)
  Sender: FDA-Public Use
  Company Number: IT-ROCHE-3445038

PATIENT

DRUGS (2)
  1. RITUXIMAB [Suspect]
     Active Substance: RITUXIMAB
     Indication: Neoplasm malignant
     Route: 065
  2. OBINUTUZUMAB [Suspect]
     Active Substance: OBINUTUZUMAB
     Indication: Neoplasm malignant
     Route: 065

REACTIONS (6)
  - COVID-19 [Fatal]
  - Aspergillus infection [Fatal]
  - Myocardial ischaemia [Fatal]
  - Respiratory failure [Unknown]
  - Pulmonary embolism [Recovered/Resolved]
  - Pneumonitis [Unknown]
